FAERS Safety Report 23034789 (Version 1)
Quarter: 2023Q4

REPORT INFORMATION
  Report Type: Spontaneous
  Country: CO (occurrence: CO)
  Receive Date: 20231005
  Receipt Date: 20231005
  Transmission Date: 20240109
  Serious: Yes (Other)
  Sender: FDA-Public Use
  Company Number: CO-SA-SAC20231003000214

PATIENT
  Sex: Female

DRUGS (1)
  1. CLOBAZAM [Suspect]
     Active Substance: CLOBAZAM
     Indication: Epilepsy
     Dosage: UNK
     Route: 048

REACTIONS (1)
  - Change in seizure presentation [Unknown]
